FAERS Safety Report 12259373 (Version 1)
Quarter: 2016Q2

REPORT INFORMATION
  Report Type: Report from Study
  Country: DE (occurrence: DE)
  Receive Date: 20160412
  Receipt Date: 20160412
  Transmission Date: 20160815
  Serious: Yes (Death, Hospitalization)
  Sender: FDA-Public Use
  Company Number: DE-ABBVIE-16P-062-1599870-00

PATIENT
  Sex: Male

DRUGS (1)
  1. DUODOPA [Suspect]
     Active Substance: CARBIDOPA\LEVODOPA
     Indication: PARKINSON^S DISEASE
     Dosage: MD. 5,5 ML; CRD 6,1 ML/ H; CRN 3,6 ML/ H; ED 1,5 ML
     Route: 050
     Dates: start: 20150427

REACTIONS (2)
  - Pneumonia [Fatal]
  - Bacterial diarrhoea [Fatal]
